FAERS Safety Report 6302720-0 (Version None)
Quarter: 2009Q3

REPORT INFORMATION
  Report Type: 
  Country: None (occurrence: None)
  Receive Date: 20090810
  Receipt Date: 20090803
  Transmission Date: 20100115
  Serious: Yes (Other)
  Sender: FDA-Public Use
  Company Number: PHEH2009US08677

PATIENT
  Sex: Female

DRUGS (3)
  1. TEKTURNA [Suspect]
     Dosage: 150 MG, UNK
  2. WARFARIN [Interacting]
  3. LEVOTHYROXINE [Concomitant]

REACTIONS (3)
  - BLOOD DISORDER [None]
  - CONSTIPATION [None]
  - DRUG INTERACTION [None]
